FAERS Safety Report 10720450 (Version 3)
Quarter: 2015Q1

REPORT INFORMATION
  Report Type: Report from Study
  Country: CA (occurrence: CA)
  Receive Date: 20150119
  Receipt Date: 20150210
  Transmission Date: 20150721
  Serious: Yes (Death, Hospitalization, Other)
  Sender: FDA-Public Use
  Company Number: CA-ROCHE-1375951

PATIENT
  Age: 74 Year
  Sex: Male
  Weight: 89.4 kg

DRUGS (14)
  1. AVASTIN [Suspect]
     Active Substance: BEVACIZUMAB
     Indication: LUNG NEOPLASM MALIGNANT
     Dosage: ON 19/SEP/2013 HE RECEIVED MOST RECENT DOSE OF BEVACIZUMAB
     Route: 042
     Dates: start: 20130801, end: 20130919
  2. ALIMTA [Suspect]
     Active Substance: PEMETREXED DISODIUM
     Indication: LUNG NEOPLASM MALIGNANT
     Route: 065
     Dates: start: 2013, end: 2013
  3. CISPLATIN. [Suspect]
     Active Substance: CISPLATIN
     Indication: LUNG NEOPLASM MALIGNANT
     Route: 065
     Dates: start: 2013, end: 2013
  4. PROZAC [Concomitant]
     Active Substance: FLUOXETINE HYDROCHLORIDE
  5. PROPANOLOL [Concomitant]
     Active Substance: PROPRANOLOL HYDROCHLORIDE
     Indication: TREMOR
     Dosage: HAS BEEN TAKING FOR MANY YEARS NO HEART ISSUES AT THIS TIME
     Route: 065
  6. RABEPRAZOLE [Concomitant]
     Active Substance: RABEPRAZOLE
     Indication: DYSPEPSIA
  7. NEUPOGEN [Concomitant]
     Active Substance: FILGRASTIM
  8. TAXOTERE [Suspect]
     Active Substance: DOCETAXEL
     Indication: LUNG NEOPLASM MALIGNANT
     Route: 065
     Dates: start: 20150108
  9. METAMUCIL [Concomitant]
     Active Substance: PLANTAGO SEED
  10. VENTOLIN [Concomitant]
     Active Substance: ALBUTEROL SULFATE
     Route: 065
  11. LORAZEPAM. [Concomitant]
     Active Substance: LORAZEPAM
     Indication: ANXIETY
  12. ASPIRIN. [Concomitant]
     Active Substance: ASPIRIN
     Route: 065
  13. COLACE [Concomitant]
     Active Substance: DOCUSATE SODIUM
  14. AVASTIN [Suspect]
     Active Substance: BEVACIZUMAB
     Route: 042
     Dates: start: 20150116, end: 20150129

REACTIONS (16)
  - Neutrophil count increased [Unknown]
  - Mean cell volume increased [Unknown]
  - Drug ineffective [Unknown]
  - Epistaxis [Not Recovered/Not Resolved]
  - Death [Fatal]
  - Lung disorder [Unknown]
  - White blood cell count increased [Unknown]
  - Nasopharyngitis [Not Recovered/Not Resolved]
  - Fatigue [Not Recovered/Not Resolved]
  - Infusion related reaction [Unknown]
  - Pneumonia [Recovered/Resolved]
  - Lymphocyte count decreased [Unknown]
  - Lower respiratory tract infection [Unknown]
  - Lung neoplasm [Unknown]
  - Red blood cell count decreased [Unknown]
  - Monocyte count increased [Unknown]

NARRATIVE: CASE EVENT DATE: 2014
